FAERS Safety Report 5788650-1 (Version None)
Quarter: 2008Q2

REPORT INFORMATION
  Report Type: 
  Country: None (occurrence: None)
  Receive Date: 20080626
  Receipt Date: 20080620
  Transmission Date: 20081010
  Serious: Yes (Hospitalization)
  Sender: FDA-Public Use
  Company Number: BR-BAYER-200815228LA

PATIENT
  Age: 29 Year
  Sex: Female

DRUGS (2)
  1. BETAFERON [Suspect]
     Indication: MULTIPLE SCLEROSIS
     Dosage: UNIT DOSE: 8 MIU
     Route: 058
     Dates: start: 20060101
  2. METICORTEN [Concomitant]
     Indication: MULTIPLE SCLEROSIS
     Route: 048
     Dates: start: 20080301

REACTIONS (4)
  - ABNORMAL BEHAVIOUR [None]
  - AGGRESSION [None]
  - INSOMNIA [None]
  - MENTAL DISORDER [None]
